FAERS Safety Report 9486888 (Version 3)
Quarter: 2013Q4

REPORT INFORMATION
  Report Type: Spontaneous
  Country: FR (occurrence: FR)
  Receive Date: 20130829
  Receipt Date: 20131023
  Transmission Date: 20140711
  Serious: Yes (Other)
  Sender: FDA-Public Use
  Company Number: FR-VERTEX PHARMACEUTICALS INC-2013-009084

PATIENT
  Age: 25 Year
  Sex: Female
  Weight: 54 kg

DRUGS (2)
  1. KALYDECO [Suspect]
     Indication: CYSTIC FIBROSIS
     Dosage: 150 MG, BID
     Dates: start: 20121110, end: 20130430
  2. DESOGEN [Concomitant]
     Indication: CONTRACEPTION
     Dosage: 1 TABLET 21 DAYS/28
     Dates: start: 20121001, end: 20130506

REACTIONS (3)
  - Blood alkaline phosphatase increased [Recovered/Resolved]
  - Hepatocellular injury [Recovered/Resolved]
  - Gastroenteritis [Recovered/Resolved]
